FAERS Safety Report 6739523-9 (Version None)
Quarter: 2010Q2

REPORT INFORMATION
  Report Type: 
  Country: None (occurrence: None)
  Receive Date: 20100525
  Receipt Date: 20100519
  Transmission Date: 20101027
  Serious: No
  Sender: FDA-Public Use
  Company Number: US-ROXANE LABORATORIES, INC.-2010-RO-00605RO

PATIENT
  Sex: Male

DRUGS (2)
  1. PREDNISONE TAB [Suspect]
     Indication: RENAL TRANSPLANT
     Dosage: 2.5 MG
     Route: 048
  2. ANDROGEL [Concomitant]
     Route: 062

REACTIONS (2)
  - AGITATION [None]
  - MOOD ALTERED [None]
